FAERS Safety Report 10227754 (Version 1)
Quarter: 2014Q2

REPORT INFORMATION
  Report Type: Spontaneous
  Country: JP (occurrence: JP)
  Receive Date: 20140610
  Receipt Date: 20140610
  Transmission Date: 20141212
  Serious: Yes (Other)
  Sender: FDA-Public Use
  Company Number: JP-PFIZER INC-2014154742

PATIENT
  Age: 62 Year
  Sex: Male

DRUGS (4)
  1. LYRICA [Suspect]
     Indication: CERVICAL RADICULOPATHY
     Dosage: 25 MG, DAILY
     Route: 048
     Dates: start: 20140418
  2. LYRICA [Suspect]
     Dosage: 50 MG, DAILY
     Dates: start: 201405
  3. SOLANAX [Suspect]
     Dosage: UNK
     Route: 048
  4. MYONAL [Concomitant]
     Dosage: UNK

REACTIONS (5)
  - Loss of consciousness [Unknown]
  - Somnolence [Unknown]
  - Dizziness [Unknown]
  - Nausea [Unknown]
  - Dysstasia [Unknown]
